FAERS Safety Report 16410122 (Version 1)
Quarter: 2019Q3

REPORT INFORMATION
  Report Type: Spontaneous
  Country: US (occurrence: US)
  Receive Date: 20190607
  Receipt Date: 20190607
  Transmission Date: 20191004
  Serious: No
  Sender: FDA-Public Use
  Company Number: None

PATIENT
  Age: 66 Year
  Sex: Female

DRUGS (1)
  1. AZELASTINE HYDROCHLORIDE OP 0.05% [Suspect]
     Active Substance: AZELASTINE HYDROCHLORIDE
     Indication: EYE IRRITATION
     Dosage: ?          QUANTITY:1 DROP(S);?
     Route: 047

REACTIONS (2)
  - Condition aggravated [None]
  - Headache [None]

NARRATIVE: CASE EVENT DATE: 20190508
